FAERS Safety Report 4697678-4 (Version None)
Quarter: 2005Q2

REPORT INFORMATION
  Report Type: 
  Country: None (occurrence: None)
  Receive Date: 20050622
  Receipt Date: 20050611
  Transmission Date: 20051028
  Serious: Yes (Other)
  Sender: FDA-Public Use
  Company Number: 2005073296

PATIENT
  Age: 17 Year
  Sex: Male

DRUGS (6)
  1. VIRACEPT [Suspect]
     Indication: HIV INFECTION
     Dosage: 2500 MG (2 IN 1 D), ORAL
     Route: 048
     Dates: start: 20040910, end: 20050511
  2. TRUVADA (EMTRICITABINE, TENOFOVIR DISOPROXIL FUMARATE) [Concomitant]
  3. ZITHROMAX [Concomitant]
  4. BACTRIM [Concomitant]
  5. IMMUNE GLOBULIN INTRAVENOUS (HUMAN) [Concomitant]
  6. NEUPOGEN [Concomitant]

REACTIONS (2)
  - DIARRHOEA [None]
  - HYPOKALAEMIA [None]
